FAERS Safety Report 8863779 (Version 1)
Quarter: 2012Q4

REPORT INFORMATION
  Report Type: 
  Country: US (occurrence: US)
  Receive Date: 20121024
  Receipt Date: 20121024
  Transmission Date: 20130627
  Serious: Yes (Hospitalization)
  Sender: FDA-Public Use
  Company Number: US-AMGEN-USASP2011063975

PATIENT
  Sex: Male

DRUGS (2)
  1. ENBREL [Suspect]
     Indication: RHEUMATOID ARTHRITIS
     Dosage: 50 mg, qwk
     Dates: start: 20010101
  2. HUMIRA [Concomitant]
     Dosage: UNK

REACTIONS (2)
  - Sepsis [Recovered/Resolved]
  - Rheumatoid arthritis [Not Recovered/Not Resolved]
